FAERS Safety Report 4672457-2 (Version None)
Quarter: 2005Q2

REPORT INFORMATION
  Report Type: 
  Country: None (occurrence: None)
  Receive Date: 20050521
  Receipt Date: 20050516
  Transmission Date: 20051028
  Serious: Yes (Death)
  Sender: FDA-Public Use
  Company Number: 05-04-0554

PATIENT
  Age: 42 Year
  Sex: Male

DRUGS (13)
  1. CLOZAPINE [Suspect]
     Dosage: 600MG QD ORAL
     Route: 048
     Dates: start: 20030701, end: 20041101
  2. NAPROSYN [Concomitant]
  3. LORTAB [Concomitant]
  4. COLACE [Concomitant]
  5. ASPIRIN [Concomitant]
  6. VASOTEC [Concomitant]
  7. MULTI-VITAMINS [Concomitant]
  8. PROLIXIN DECANOATE [Concomitant]
  9. WELLBUTRIN SR [Concomitant]
  10. DEPAKOTE [Concomitant]
  11. AMANTADINE [Concomitant]
  12. SEROQUEL [Concomitant]
  13. TIVAN [Concomitant]

REACTIONS (6)
  - ALCOHOL USE [None]
  - ATHEROSCLEROSIS [None]
  - CONGESTIVE CARDIOMYOPATHY [None]
  - CORONARY ARTERY DISEASE [None]
  - DRUG TOXICITY [None]
  - HYPERTENSIVE HEART DISEASE [None]
